FAERS Safety Report 15940370 (Version 2)
Quarter: 2019Q1

REPORT INFORMATION
  Report Type: Spontaneous
  Country: JP (occurrence: JP)
  Receive Date: 20190208
  Receipt Date: 20190304
  Transmission Date: 20190417
  Serious: Yes (Other)
  Sender: FDA-Public Use
  Company Number: JP-BAYER-2019-027994

PATIENT
  Age: 6 Decade
  Sex: Female

DRUGS (9)
  1. STIVARGA [Suspect]
     Active Substance: REGORAFENIB
     Indication: COLON CANCER
     Dosage: 80 MG, QD(DAY12-15, 1ST CYCLE)
     Route: 048
  2. MYSER [DIFLUPREDNATE] [Concomitant]
     Indication: PALMAR-PLANTAR ERYTHRODYSAESTHESIA SYNDROME
     Dosage: BID
     Route: 051
  3. MYSER [DIFLUPREDNATE] [Concomitant]
     Indication: DRY SKIN PROPHYLAXIS
  4. STIVARGA [Suspect]
     Active Substance: REGORAFENIB
     Indication: COLON CANCER
     Dosage: UNK
     Route: 048
  5. TAKECAB [Suspect]
     Active Substance: VONOPRAZAN FUMURATE
  6. STIVARGA [Suspect]
     Active Substance: REGORAFENIB
     Indication: COLON CANCER
     Dosage: 120 MG, QD(DAY1-5, 1ST CYCLE)
     Route: 048
  7. LYRICA [Suspect]
     Active Substance: PREGABALIN
  8. STIVARGA [Suspect]
     Active Substance: REGORAFENIB
     Indication: COLON CANCER
     Dosage: QD (DAY1-8, 2ND CYCLE)
     Route: 048
  9. STIVARGA [Suspect]
     Active Substance: REGORAFENIB
     Indication: COLON CANCER
     Dosage: QD (DAY14-21, 2ND CYCLE)
     Route: 048

REACTIONS (9)
  - Abdominal pain [Recovered/Resolved]
  - Diarrhoea [Recovered/Resolved]
  - Blister [Recovering/Resolving]
  - Joint stiffness [Recovering/Resolving]
  - Colon cancer [Unknown]
  - Haematochezia [Unknown]
  - Palmar-plantar erythrodysaesthesia syndrome [Recovering/Resolving]
  - Erythema [Recovering/Resolving]
  - Pain in extremity [Recovering/Resolving]
